FAERS Safety Report 5374613-7 (Version None)
Quarter: 2007Q2

REPORT INFORMATION
  Report Type: 
  Country: None (occurrence: None)
  Receive Date: 20070627
  Receipt Date: 20070405
  Transmission Date: 20071010
  Serious: Yes (Death)
  Sender: FDA-Public Use
  Company Number: 491644

PATIENT
  Sex: Female

DRUGS (3)
  1. XELODA [Suspect]
     Indication: COLORECTAL CANCER
  2. AVASTIN [Suspect]
     Indication: COLORECTAL CANCER
  3. ELOXATIN [Suspect]
     Indication: COLORECTAL CANCER

REACTIONS (2)
  - CONDITION AGGRAVATED [None]
  - HEPATIC NEOPLASM MALIGNANT [None]
